FAERS Safety Report 11992992 (Version 1)
Quarter: 2016Q1

REPORT INFORMATION
  Report Type: Spontaneous
  Country: US (occurrence: US)
  Receive Date: 20160203
  Receipt Date: 20160203
  Transmission Date: 20160526
  Serious: Yes (Other)
  Sender: FDA-Public Use
  Company Number: US-UCBSA-2015016209

PATIENT
  Sex: Male

DRUGS (1)
  1. KEPPRA [Suspect]
     Active Substance: LEVETIRACETAM
     Indication: SEIZURE
     Dosage: UNK
     Dates: start: 2015

REACTIONS (8)
  - Hypoaesthesia [Unknown]
  - Feeling hot [Unknown]
  - Fatigue [Unknown]
  - Generalised tonic-clonic seizure [Unknown]
  - Dizziness [Unknown]
  - Partial seizures [Unknown]
  - Paraesthesia [Unknown]
  - Dysgeusia [Unknown]

NARRATIVE: CASE EVENT DATE: 2015
